FAERS Safety Report 18625454 (Version 5)
Quarter: 2022Q1

REPORT INFORMATION
  Report Type: Report from Study
  Country: US (occurrence: US)
  Receive Date: 20201216
  Receipt Date: 20220330
  Transmission Date: 20220423
  Serious: Yes (Other)
  Sender: FDA-Public Use
  Company Number: US-NOVARTISTESTPH-NVSC2020US333788

PATIENT
  Age: 90 Year
  Sex: Male
  Weight: 54.9 kg

DRUGS (1)
  1. ENTRESTO [Suspect]
     Active Substance: SACUBITRIL\VALSARTAN
     Indication: Cardiac failure chronic
     Dosage: UNK
     Route: 065

REACTIONS (16)
  - Pulmonary valve incompetence [Unknown]
  - Tricuspid valve incompetence [Unknown]
  - Pulmonary hypertension [Unknown]
  - Ventricular hypokinesia [Unknown]
  - Aortic valve incompetence [Unknown]
  - Mitral valve incompetence [Unknown]
  - Arrhythmia [Unknown]
  - Cardiomyopathy [Unknown]
  - Aortic valve sclerosis [Unknown]
  - Aortic valve calcification [Unknown]
  - Right ventricular systolic pressure decreased [Unknown]
  - Systolic dysfunction [Unknown]
  - Atrial enlargement [Unknown]
  - Mitral valve calcification [Unknown]
  - Dizziness [Unknown]
  - Hypoacusis [Unknown]

NARRATIVE: CASE EVENT DATE: 20211210
